FAERS Safety Report 9942748 (Version 1)
Quarter: 2014Q1

REPORT INFORMATION
  Report Type: Report from Study
  Country: US (occurrence: US)
  Receive Date: 20140303
  Receipt Date: 20140303
  Transmission Date: 20141002
  Serious: No
  Sender: FDA-Public Use
  Company Number: US-ABBVIE-13P-163-1046577-00

PATIENT
  Age: 58 Year
  Sex: Male

DRUGS (9)
  1. HUMIRA [Suspect]
     Indication: CROHN^S DISEASE
     Dates: start: 201212
  2. OMEPRAZOLE [Concomitant]
     Indication: GASTROOESOPHAGEAL REFLUX DISEASE
  3. LABETALOL [Concomitant]
     Indication: BLOOD PRESSURE INCREASED
  4. COLAZOL [Concomitant]
     Indication: CROHN^S DISEASE
  5. AMITRIPTYLINE [Concomitant]
     Indication: INSOMNIA
     Dosage: AT BEDTIME
  6. FENOFIBRATE [Concomitant]
     Indication: BLOOD CHOLESTEROL
  7. FIORINAL [Concomitant]
     Indication: MIGRAINE
     Dosage: 50/325 1-2 EVERY 4 HOURS AS NEEDED
  8. FISH OIL [Concomitant]
     Indication: PRODUCT USED FOR UNKNOWN INDICATION
  9. LIPOFLAVONOID [Concomitant]
     Indication: VITAMIN SUPPLEMENTATION

REACTIONS (2)
  - Pyrexia [Recovered/Resolved]
  - Nasopharyngitis [Recovering/Resolving]
